FAERS Safety Report 16371122 (Version 1)
Quarter: 2019Q2

REPORT INFORMATION
  Report Type: Spontaneous
  Country: JP (occurrence: JP)
  Receive Date: 20190530
  Receipt Date: 20190530
  Transmission Date: 20190711
  Serious: Yes (Other)
  Sender: FDA-Public Use
  Company Number: JP-PFIZER INC-2019217595

PATIENT
  Age: 7 Decade
  Sex: Female

DRUGS (2)
  1. CELECOX [Suspect]
     Active Substance: CELECOXIB
     Indication: ARTHRALGIA
     Dosage: UNK
     Route: 048
  2. SUGLAT [Suspect]
     Active Substance: IPRAGLIFLOZIN L-PROLINE
     Indication: TYPE 2 DIABETES MELLITUS
     Dosage: 50 MG, 1X/DAY
     Route: 048
     Dates: start: 201903, end: 20190513

REACTIONS (12)
  - Protein urine present [Unknown]
  - Eczema [Not Recovered/Not Resolved]
  - Depression [Recovered/Resolved]
  - Alanine aminotransferase abnormal [Unknown]
  - Type 2 diabetes mellitus [Unknown]
  - Urine ketone body present [Unknown]
  - Weight decreased [Unknown]
  - Rash [Not Recovered/Not Resolved]
  - Pruritus [Unknown]
  - Blood creatine phosphokinase increased [Unknown]
  - Decreased appetite [Recovered/Resolved]
  - Aspartate aminotransferase abnormal [Unknown]

NARRATIVE: CASE EVENT DATE: 201902
